FAERS Safety Report 19089156 (Version 1)
Quarter: 2021Q2

REPORT INFORMATION
  Report Type: Spontaneous
  Country: US (occurrence: US)
  Receive Date: 20210403
  Receipt Date: 20210403
  Transmission Date: 20210717
  Serious: Yes (Other)
  Sender: FDA-Public Use
  Company Number: US-AMGEN-USASP2021049563

PATIENT
  Sex: Male

DRUGS (1)
  1. OTEZLA [Suspect]
     Active Substance: APREMILAST
     Indication: PSORIATIC ARTHROPATHY
     Dosage: STARTER PACK
     Route: 065
     Dates: start: 201905, end: 201905

REACTIONS (3)
  - Weight decreased [Unknown]
  - Depression [Unknown]
  - Diverticulitis [Unknown]

NARRATIVE: CASE EVENT DATE: 201905
